FAERS Safety Report 7436273-0 (Version None)
Quarter: 2011Q2

REPORT INFORMATION
  Report Type: 
  Country: None (occurrence: None)
  Receive Date: 20110426
  Receipt Date: 20110414
  Transmission Date: 20111010
  Serious: Yes (Other)
  Sender: FDA-Public Use
  Company Number: ES-PAR PHARMACEUTICAL, INC-2011SCPR002911

PATIENT
  Age: 74 Year
  Sex: Female

DRUGS (2)
  1. CAPOTEN [Suspect]
     Indication: PRODUCT USED FOR UNKNOWN INDICATION
     Dosage: 1-1/2-1
     Route: 065
     Dates: start: 20090101
  2. CAPOTEN [Suspect]
     Dosage: 1/2-1/2-1/2
     Route: 065

REACTIONS (1)
  - ARRHYTHMIA [None]
